FAERS Safety Report 4907495-5 (Version None)
Quarter: 2006Q1

REPORT INFORMATION
  Report Type: 
  Country: None (occurrence: None)
  Receive Date: 20060210
  Receipt Date: 20051215
  Transmission Date: 20060701
  Serious: Yes (Hospitalization, Other)
  Sender: FDA-Public Use
  Company Number: US-MERCK-0512USA02479

PATIENT
  Age: 68 Year
  Sex: Female
  Weight: 82 kg

DRUGS (2)
  1. VIOXX [Suspect]
     Indication: ARTHRITIS
     Route: 048
     Dates: start: 20000101, end: 20020301
  2. TYLENOL (CAPLET) [Concomitant]
     Route: 065

REACTIONS (3)
  - KNEE ARTHROPLASTY [None]
  - PRESCRIBED OVERDOSE [None]
  - PULMONARY EMBOLISM [None]
